FAERS Safety Report 11862692 (Version 1)
Quarter: 2015Q4

REPORT INFORMATION
  Report Type: Spontaneous
  Country: US (occurrence: None)
  Receive Date: 20151222
  Receipt Date: 20151222
  Transmission Date: 20160305
  Serious: Yes (Other)
  Sender: FDA-Public Use
  Company Number: None

PATIENT
  Age: 84 Year
  Sex: Female
  Weight: 80.29 kg

DRUGS (9)
  1. FLUTICASONE PROPIONATE NASAL SPRAY USP 50MCG ROXANE LABORATORIES [Suspect]
     Active Substance: FLUTICASONE PROPIONATE
     Indication: PHARYNGEAL DISORDER
     Route: 045
     Dates: start: 20151021, end: 20151130
  2. FLUTICASONE PROPIONATE NASAL SPRAY USP 50MCG ROXANE LABORATORIES [Suspect]
     Active Substance: FLUTICASONE PROPIONATE
     Indication: MIDDLE EAR EFFUSION
     Route: 045
     Dates: start: 20151021, end: 20151130
  3. VIT.D. [Concomitant]
  4. ASPIRIN. [Concomitant]
     Active Substance: ASPIRIN
  5. CALCIUM [Concomitant]
     Active Substance: CALCIUM
  6. SYNTHROID [Concomitant]
     Active Substance: LEVOTHYROXINE SODIUM
  7. LISINOPRIL. [Concomitant]
     Active Substance: LISINOPRIL
  8. FISH OIL [Concomitant]
     Active Substance: FISH OIL
  9. MAGMESIUM [Concomitant]

REACTIONS (3)
  - Dry eye [None]
  - Visual impairment [None]
  - Vision blurred [None]

NARRATIVE: CASE EVENT DATE: 20151025
